FAERS Safety Report 9070060 (Version 1)
Quarter: 2013Q1

REPORT INFORMATION
  Report Type: Report from Study
  Country: US (occurrence: US)
  Receive Date: 20130129
  Receipt Date: 20130129
  Transmission Date: 20140127
  Serious: No
  Sender: FDA-Public Use
  Company Number: US-ABBOTT-12P-163-0902000-00

PATIENT
  Age: 13 Year
  Sex: Male

DRUGS (6)
  1. HUMIRA 40 MG/0.8 ML PEN [Suspect]
     Indication: PSORIASIS
     Dates: start: 20120106, end: 20120106
  2. HUMIRA 40 MG/0.8 ML PEN [Suspect]
     Indication: INFLAMMATORY BOWEL DISEASE
     Dates: start: 20120120, end: 20120120
  3. HUMIRA 40 MG/0.8 ML PEN [Suspect]
     Dates: start: 20120203
  4. FISH OIL [Concomitant]
     Indication: INFLAMMATORY BOWEL DISEASE
     Route: 048
  5. NASACORT [Concomitant]
     Indication: HYPERSENSITIVITY
     Dosage: DAILY IN THE EVENING
     Route: 045
  6. ASACOL [Concomitant]
     Indication: INFLAMMATORY BOWEL DISEASE

REACTIONS (5)
  - Injection site pain [Recovered/Resolved]
  - Device malfunction [Unknown]
  - Incorrect dose administered [Unknown]
  - Injection site haemorrhage [Unknown]
  - Injection site pain [Unknown]
